FAERS Safety Report 24842778 (Version 4)
Quarter: 2025Q2

REPORT INFORMATION
  Report Type: Report from Study
  Country: CA (occurrence: CA)
  Receive Date: 20250115
  Receipt Date: 20250616
  Transmission Date: 20250717
  Serious: Yes (Other)
  Sender: TAKEDA
  Company Number: CA-TAKEDA-2024TUS095837

PATIENT
  Age: 50 Year
  Sex: Female
  Weight: 57 kg

DRUGS (21)
  1. TEDUGLUTIDE [Suspect]
     Active Substance: TEDUGLUTIDE
     Indication: Short-bowel syndrome
     Dosage: 3.2 MILLIGRAM, QD
     Dates: start: 20240924
  2. TEDUGLUTIDE [Suspect]
     Active Substance: TEDUGLUTIDE
     Dosage: UNK UNK, QD
  3. TEDUGLUTIDE [Suspect]
     Active Substance: TEDUGLUTIDE
     Dosage: 3.2 MILLIGRAM, QD
  4. TEDUGLUTIDE [Suspect]
     Active Substance: TEDUGLUTIDE
     Dosage: UNK UNK, QD
  5. TEDUGLUTIDE [Suspect]
     Active Substance: TEDUGLUTIDE
     Dosage: 3.2 MILLIGRAM, QD
  6. TEDUGLUTIDE [Suspect]
     Active Substance: TEDUGLUTIDE
     Dosage: 3.2 MILLIGRAM, QD
  7. TEDUGLUTIDE [Suspect]
     Active Substance: TEDUGLUTIDE
     Dosage: 3 MILLIGRAM, QD
  8. TEDUGLUTIDE [Suspect]
     Active Substance: TEDUGLUTIDE
     Dosage: UNK UNK, QD
  9. TPN [Concomitant]
     Active Substance: AMINO ACIDS\DEXTROSE\ELECTROLYTES NOS\SOYBEAN OIL
     Dosage: 2000 MILLILITER, QD
     Dates: start: 20220829
  10. TPN [Concomitant]
     Active Substance: AMINO ACIDS\DEXTROSE\ELECTROLYTES NOS\SOYBEAN OIL
     Dosage: 1600 MILLILITER, QD
     Dates: start: 20241016
  11. TPN [Concomitant]
     Active Substance: AMINO ACIDS\DEXTROSE\ELECTROLYTES NOS\SOYBEAN OIL
     Dosage: 1600 MILLILITER, QOD
     Dates: start: 20241105
  12. URSODIOL [Concomitant]
     Active Substance: URSODIOL
  13. URSODIOL [Concomitant]
     Active Substance: URSODIOL
  14. VITAMIN A [Concomitant]
     Active Substance: VITAMIN A
  15. OLANZAPINE [Concomitant]
     Active Substance: OLANZAPINE
  16. TYLENOL [Concomitant]
     Active Substance: ACETAMINOPHEN
  17. PANTOPRAZOLE SODIUM [Concomitant]
     Active Substance: PANTOPRAZOLE SODIUM
  18. CALCIUM [Concomitant]
     Active Substance: CALCIUM
  19. METAMUCIL [Concomitant]
     Active Substance: PLANTAGO SEED
  20. STELARA [Concomitant]
     Active Substance: USTEKINUMAB
     Dosage: UNK UNK, MONTHLY
  21. VITAMIN D NOS [Concomitant]
     Active Substance: CHOLECALCIFEROL\ERGOCALCIFEROL

REACTIONS (20)
  - Crohn^s disease [Unknown]
  - Urinary tract infection [Recovered/Resolved]
  - Faeces discoloured [Recovering/Resolving]
  - Infusion site reaction [Recovered/Resolved]
  - Stoma complication [Recovering/Resolving]
  - Faecal volume decreased [Recovered/Resolved]
  - Dehydration [Unknown]
  - Injection site mass [Unknown]
  - Weight decreased [Unknown]
  - Diarrhoea [Unknown]
  - Intentional product use issue [Unknown]
  - Abnormal faeces [Unknown]
  - Skin reaction [Unknown]
  - Injection site induration [Recovering/Resolving]
  - Injection site pruritus [Recovering/Resolving]
  - Headache [Recovered/Resolved]
  - Abdominal pain upper [Recovered/Resolved]
  - Abdominal distension [Unknown]
  - Injection site erythema [Recovered/Resolved]
  - Injection site pain [Recovering/Resolving]

NARRATIVE: CASE EVENT DATE: 20240901
